FAERS Safety Report 4369215-5 (Version None)
Quarter: 2004Q2

REPORT INFORMATION
  Report Type: 
  Country: None (occurrence: None)
  Receive Date: 20040525
  Receipt Date: 20040518
  Transmission Date: 20050107
  Serious: Yes (Hospitalization)
  Sender: FDA-Public Use
  Company Number: 2004UW09360

PATIENT
  Age: 61 Year
  Sex: Female

DRUGS (2)
  1. CRESTOR [Suspect]
     Indication: BLOOD CHOLESTEROL INCREASED
     Dosage: 10 MG DAILY PO
     Route: 048
     Dates: start: 20040201, end: 20040501
  2. BEXTRA [Concomitant]

REACTIONS (7)
  - BONE MARROW TRANSPLANT [None]
  - DIALYSIS [None]
  - FATIGUE [None]
  - FEELING ABNORMAL [None]
  - PRIMARY AMYLOIDOSIS [None]
  - PROTEIN URINE PRESENT [None]
  - RENAL FAILURE CHRONIC [None]
